FAERS Safety Report 10706668 (Version 1)
Quarter: 2015Q1

REPORT INFORMATION
  Report Type: Spontaneous
  Country: US (occurrence: US)
  Receive Date: 20150113
  Receipt Date: 20150113
  Transmission Date: 20150721
  Serious: Yes (Other)
  Sender: FDA-Public Use
  Company Number: US-NOVOPROD-434398

PATIENT
  Age: 50 Year
  Sex: Male

DRUGS (1)
  1. NOVOLOG [Suspect]
     Active Substance: INSULIN ASPART
     Indication: TYPE 1 DIABETES MELLITUS
     Dosage: 20 UNITS THREE TIMES DAILY WITH MEAL
     Route: 058
     Dates: start: 2004

REACTIONS (3)
  - Accidental exposure to product [None]
  - Suspected transmission of an infectious agent via product [Not Recovered/Not Resolved]
  - Exposure to contaminated device [None]

NARRATIVE: CASE EVENT DATE: 20150101
